FAERS Safety Report 8378730-9 (Version None)
Quarter: 2012Q2

REPORT INFORMATION
  Report Type: 
  Country: None (occurrence: None)
  Receive Date: 20120522
  Receipt Date: 20120514
  Transmission Date: 20120825
  Serious: Yes (Other)
  Sender: FDA-Public Use
  Company Number: CHPA2012DE010447

PATIENT
  Sex: Female

DRUGS (1)
  1. SCOPOLAMINE [Suspect]
     Indication: MOTION SICKNESS
     Dosage: 1 DF, Q72H
     Route: 062
     Dates: end: 20120510

REACTIONS (6)
  - CARDIOVASCULAR DISORDER [None]
  - NAUSEA [None]
  - BLOOD PRESSURE FLUCTUATION [None]
  - DRY MOUTH [None]
  - VOMITING [None]
  - VISUAL IMPAIRMENT [None]
